FAERS Safety Report 15268612 (Version 1)
Quarter: 2018Q3

REPORT INFORMATION
  Report Type: Report from Study
  Country: US (occurrence: US)
  Receive Date: 20180812
  Receipt Date: 20180812
  Transmission Date: 20181010
  Serious: Yes (Death)
  Sender: FDA-Public Use
  Company Number: US-ASTRAZENECA-2018SF01188

PATIENT
  Sex: Male

DRUGS (4)
  1. SYNAGIS [Suspect]
     Active Substance: PALIVIZUMAB
     Indication: PREMATURE BABY
     Dosage: 50MG/0.5ML, 15 MG/KG MONTHLY
     Route: 030
     Dates: start: 20171120, end: 20180106
  2. SYNAGIS [Suspect]
     Active Substance: PALIVIZUMAB
     Indication: TRISOMY 21
     Dosage: 100MG/ML, 15 MG/KG MONTHLY
     Route: 030
     Dates: start: 20171120, end: 20180106
  3. SYNAGIS [Suspect]
     Active Substance: PALIVIZUMAB
     Indication: TRISOMY 21
     Dosage: 50MG/0.5ML, 15 MG/KG MONTHLY
     Route: 030
     Dates: start: 20171120, end: 20180106
  4. SYNAGIS [Suspect]
     Active Substance: PALIVIZUMAB
     Indication: PREMATURE BABY
     Dosage: 100MG/ML, 15 MG/KG MONTHLY
     Route: 030
     Dates: start: 20171120, end: 20180106

REACTIONS (1)
  - Death [Fatal]
